FAERS Safety Report 9504245 (Version 1)
Quarter: 2013Q3

REPORT INFORMATION
  Report Type: Spontaneous
  Country: FR (occurrence: FR)
  Receive Date: 20130906
  Receipt Date: 20130906
  Transmission Date: 20140515
  Serious: Yes (Other)
  Sender: FDA-Public Use
  Company Number: FR-GLAXOSMITHKLINE-B0919078A

PATIENT
  Age: 47 Year
  Sex: Female

DRUGS (3)
  1. TYVERB [Suspect]
     Indication: HER-2 POSITIVE BREAST CANCER
     Dosage: 1250MG PER DAY
     Route: 048
     Dates: start: 2013, end: 2013
  2. CARBOPLATIN [Concomitant]
     Indication: HER-2 POSITIVE BREAST CANCER
  3. HERCEPTIN [Concomitant]
     Indication: HER-2 POSITIVE BREAST CANCER

REACTIONS (7)
  - Erythema [Not Recovered/Not Resolved]
  - Local swelling [Not Recovered/Not Resolved]
  - Rash [Not Recovered/Not Resolved]
  - Pruritus [Not Recovered/Not Resolved]
  - Lymphoedema [Not Recovered/Not Resolved]
  - Condition aggravated [Not Recovered/Not Resolved]
  - Off label use [Unknown]
